FAERS Safety Report 8371056-9 (Version None)
Quarter: 2012Q2

REPORT INFORMATION
  Report Type: 
  Country: None (occurrence: None)
  Receive Date: 20120518
  Receipt Date: 20120110
  Transmission Date: 20120825
  Serious: No
  Sender: FDA-Public Use
  Company Number: US-BRISTOL-MYERS SQUIBB COMPANY-14908826

PATIENT
  Age: 73 Year
  Sex: Male
  Weight: 65 kg

DRUGS (3)
  1. BARACLUDE [Suspect]
     Indication: HEPATITIS B
     Dosage: 05DEC09 1 MG.NOW0.5MG/D AND 1MG:22DEC09;0.5MG,LOT1189865A3:EXP-MAR12 MANY YEARS
     Route: 048
     Dates: start: 20091101
  2. DALMANE [Concomitant]
  3. PREVACID [Concomitant]

REACTIONS (6)
  - GAIT DISTURBANCE [None]
  - RHINORRHOEA [None]
  - INSOMNIA [None]
  - CHROMATURIA [None]
  - NECK PAIN [None]
  - COUGH [None]
